FAERS Safety Report 11201533 (Version 1)
Quarter: 2015Q2

REPORT INFORMATION
  Report Type: Spontaneous
  Country: BR (occurrence: BR)
  Receive Date: 20150619
  Receipt Date: 20150619
  Transmission Date: 20150821
  Serious: Yes (Other)
  Sender: FDA-Public Use
  Company Number: BR-BAYER-2015-315854

PATIENT
  Sex: Female

DRUGS (1)
  1. MIRENA [Suspect]
     Active Substance: LEVONORGESTREL
     Dosage: 20 MCG/24HR, CONT
     Route: 015
     Dates: start: 20150225

REACTIONS (8)
  - Candida infection [None]
  - Urinary tract infection [None]
  - Abdominal distension [None]
  - Headache [None]
  - Mood altered [None]
  - Vulvovaginal swelling [None]
  - Libido decreased [None]
  - Breast pain [None]
